FAERS Safety Report 9603783 (Version 2)
Quarter: 2013Q4

REPORT INFORMATION
  Report Type: Report from Study
  Country: CA (occurrence: CA)
  Receive Date: 20131008
  Receipt Date: 20131011
  Transmission Date: 20140711
  Serious: Yes (Other)
  Sender: FDA-Public Use
  Company Number: CA-ROCHE-1285845

PATIENT
  Sex: Female

DRUGS (9)
  1. ACTEMRA [Suspect]
     Indication: RHEUMATOID ARTHRITIS
     Route: 042
     Dates: start: 20130711
  2. PREDNISONE [Concomitant]
  3. PLAQUENIL [Concomitant]
  4. AMITRIPTYLINE [Concomitant]
     Route: 065
  5. CARBOCAL D [Concomitant]
  6. NEXIUM [Concomitant]
  7. CIPRALEX [Concomitant]
  8. TYLENOL ARTHRITIS [Concomitant]
  9. DOCUSATE [Concomitant]

REACTIONS (1)
  - Cataract [Not Recovered/Not Resolved]
